FAERS Safety Report 22318145 (Version 1)
Quarter: 2023Q2

REPORT INFORMATION
  Report Type: Spontaneous
  Country: US (occurrence: US)
  Receive Date: 20230515
  Receipt Date: 20230515
  Transmission Date: 20230722
  Serious: No
  Sender: FDA-Public Use
  Company Number: US-UCBSA-2023003992

PATIENT
  Sex: Male

DRUGS (1)
  1. NEUPRO [Suspect]
     Active Substance: ROTIGOTINE
     Indication: Product used for unknown indication
     Dosage: 8MG (FORGOT TO REMOVE WHEN CHANGING PATCH)
     Route: 062
     Dates: start: 20230101

REACTIONS (2)
  - Gastrooesophageal reflux disease [Unknown]
  - Wrong technique in product usage process [Unknown]
